FAERS Safety Report 15527034 (Version 19)
Quarter: 2020Q3

REPORT INFORMATION
  Report Type: Report from Study
  Country: PA (occurrence: PA)
  Receive Date: 20181018
  Receipt Date: 20200730
  Transmission Date: 20201102
  Serious: Yes (Hospitalization, Other)
  Sender: FDA-Public Use
  Company Number: PHHY2017PA146303

PATIENT
  Age: 42 Year
  Sex: Female

DRUGS (9)
  1. XOLAIR [Suspect]
     Active Substance: OMALIZUMAB
     Indication: ASTHMA
     Dosage: 150 MG, QMO
     Route: 058
     Dates: start: 20170928
  2. XOLAIR [Suspect]
     Active Substance: OMALIZUMAB
     Dosage: 1 DF (150MG), QMO
     Route: 058
  3. BETAMETHASONE. [Concomitant]
     Active Substance: BETAMETHASONE
     Indication: PRODUCT USED FOR UNKNOWN INDICATION
     Route: 065
  4. XOLAIR [Suspect]
     Active Substance: OMALIZUMAB
     Dosage: 150 MG, QMO
     Route: 065
  5. LORATADINE. [Concomitant]
     Active Substance: LORATADINE
     Indication: PRODUCT USED FOR UNKNOWN INDICATION
     Dosage: 10 MG, QD
     Route: 048
  6. XOLAIR [Suspect]
     Active Substance: OMALIZUMAB
     Dosage: UNK UNK, QMO
     Route: 065
     Dates: start: 202005
  7. MONTELUKAST SODIUM. [Suspect]
     Active Substance: MONTELUKAST SODIUM
     Indication: ARTHRITIS
     Dosage: 25 MG, QD
     Route: 048
  8. XOLAIR [Suspect]
     Active Substance: OMALIZUMAB
     Dosage: UNK
     Route: 065
     Dates: start: 201909
  9. XOLAIR [Suspect]
     Active Substance: OMALIZUMAB
     Dosage: 150 MG, QMO
     Route: 058

REACTIONS (54)
  - Feeling abnormal [Not Recovered/Not Resolved]
  - Feeling hot [Not Recovered/Not Resolved]
  - Bronchitis [Recovering/Resolving]
  - Wheezing [Unknown]
  - Rhinitis allergic [Unknown]
  - Cough [Unknown]
  - Injection site pain [Unknown]
  - Bone pain [Not Recovered/Not Resolved]
  - Reflux gastritis [Unknown]
  - Agitation [Unknown]
  - Dermatitis atopic [Unknown]
  - Injection site movement impairment [Unknown]
  - Administration site inflammation [Unknown]
  - Injection site pain [Recovered/Resolved]
  - Blood pressure increased [Unknown]
  - Pruritus [Unknown]
  - Uterine leiomyoma [Not Recovered/Not Resolved]
  - Maxillary sinus pseudocyst [Unknown]
  - Helicobacter infection [Unknown]
  - Sinusitis [Unknown]
  - Eye pain [Unknown]
  - Conjunctivitis allergic [Unknown]
  - Flushing [Unknown]
  - Product use in unapproved indication [Unknown]
  - Rheumatoid factor increased [Unknown]
  - Chest discomfort [Unknown]
  - Blood pressure abnormal [Unknown]
  - Malaise [Not Recovered/Not Resolved]
  - Fatigue [Not Recovered/Not Resolved]
  - Lung opacity [Unknown]
  - Neck pain [Not Recovered/Not Resolved]
  - Uterine cyst [Unknown]
  - Asthmatic crisis [Unknown]
  - Dyspnoea [Unknown]
  - Visual impairment [Not Recovered/Not Resolved]
  - Oedema peripheral [Unknown]
  - Injection site pruritus [Unknown]
  - Hypersensitivity [Unknown]
  - Nasal cyst [Unknown]
  - Rheumatoid arthritis [Unknown]
  - Urticaria [Recovered/Resolved]
  - Oedema [Not Recovered/Not Resolved]
  - Vision blurred [Unknown]
  - Haematoma [Unknown]
  - Haemorrhage [Recovering/Resolving]
  - General physical health deterioration [Not Recovered/Not Resolved]
  - Pain [Unknown]
  - Eye irritation [Unknown]
  - Dysphonia [Unknown]
  - Pain in extremity [Not Recovered/Not Resolved]
  - Arthritis [Not Recovered/Not Resolved]
  - Headache [Not Recovered/Not Resolved]
  - Arthralgia [Not Recovered/Not Resolved]
  - Pyrexia [Unknown]

NARRATIVE: CASE EVENT DATE: 201809
